FAERS Safety Report 6651165-2 (Version None)
Quarter: 2010Q1

REPORT INFORMATION
  Report Type: 
  Country: None (occurrence: None)
  Receive Date: 20100325
  Receipt Date: 20100311
  Transmission Date: 20100710
  Serious: No
  Sender: FDA-Public Use
  Company Number: US-ROXANE LABORATORIES, INC.-2010-RO-00164RO

PATIENT
  Sex: Male
  Weight: 79 kg

DRUGS (8)
  1. OXCARBAZEPINE [Suspect]
     Indication: AFFECTIVE DISORDER
     Dosage: 1800 MG
     Dates: start: 20100211, end: 20100212
  2. OXCARBAZEPINE [Suspect]
     Dosage: 1200 MG
     Dates: end: 20100210
  3. OXCARBAZEPINE [Suspect]
     Dosage: 1800 MG
     Dates: start: 20100215
  4. AMLODIPINE [Suspect]
     Indication: HYPERTENSION
     Dosage: 10 MG
  5. LAMICTAL CD [Concomitant]
     Indication: BIPOLAR II DISORDER
     Dosage: 250 MG
  6. FLOMAX [Concomitant]
  7. OMEPRAZOLE [Concomitant]
     Indication: GASTROOESOPHAGEAL REFLUX DISEASE
     Dosage: 80 MG
  8. LISINOPRIL [Concomitant]
     Indication: HYPERTENSION
     Dosage: 10 MG

REACTIONS (5)
  - ANXIETY [None]
  - DYSPNOEA [None]
  - MOOD ALTERED [None]
  - PANIC REACTION [None]
  - VERTIGO [None]
